FAERS Safety Report 8292279-3 (Version None)
Quarter: 2012Q2

REPORT INFORMATION
  Report Type: 
  Country: None (occurrence: None)
  Receive Date: 20120417
  Receipt Date: 20120405
  Transmission Date: 20120825
  Serious: Yes (Other)
  Sender: FDA-Public Use
  Company Number: TR-FRI-1000016976

PATIENT
  Sex: Male
  Weight: 69 kg

DRUGS (3)
  1. ESCITALOPRAM [Suspect]
     Indication: DEPRESSION
     Dosage: 10 MG
     Route: 048
     Dates: start: 20100903
  2. FERROUS CARBONATE [Concomitant]
     Route: 048
  3. LANSOR [Concomitant]
     Route: 048

REACTIONS (1)
  - CATARACT SUBCAPSULAR [None]
